FAERS Safety Report 6838488-9 (Version None)
Quarter: 2010Q3

REPORT INFORMATION
  Report Type: 
  Country: None (occurrence: None)
  Receive Date: 20100713
  Receipt Date: 20070612
  Transmission Date: 20110219
  Serious: No
  Sender: FDA-Public Use
  Company Number: US-PFIZER INC-2007049544

PATIENT
  Sex: Female
  Weight: 63.1 kg

DRUGS (5)
  1. CHANTIX [Suspect]
     Indication: SMOKING CESSATION THERAPY
     Dates: start: 20070101
  2. EFFEXOR [Concomitant]
  3. CYTOMEL [Concomitant]
  4. FENOFIBRATE [Concomitant]
  5. ZETIA [Concomitant]

REACTIONS (2)
  - NIGHTMARE [None]
  - POOR QUALITY SLEEP [None]
